FAERS Safety Report 6920765-4 (Version None)
Quarter: 2010Q3

REPORT INFORMATION
  Report Type: 
  Country: None (occurrence: None)
  Receive Date: 20100812
  Receipt Date: 20100806
  Transmission Date: 20110219
  Serious: Yes (Other)
  Sender: FDA-Public Use
  Company Number: US-RANBAXY-2010US-36915

PATIENT

DRUGS (1)
  1. AMOXICILLIN AND CLAVULANATE POTASSIUM [Suspect]
     Indication: UPPER RESPIRATORY TRACT INFECTION
     Dosage: UNK, UNK
     Route: 065

REACTIONS (2)
  - JAUNDICE [None]
  - LIVER DISORDER [None]
